FAERS Safety Report 6012810-8 (Version None)
Quarter: 2008Q4

REPORT INFORMATION
  Report Type: 
  Country: None (occurrence: None)
  Receive Date: 20081219
  Receipt Date: 20081210
  Transmission Date: 20090506
  Serious: Yes (Other)
  Sender: FDA-Public Use
  Company Number: US-JNJFOC-20081100879

PATIENT
  Sex: Male
  Weight: 45.36 kg

DRUGS (1)
  1. TOPAMAX [Suspect]
     Indication: TOURETTE'S DISORDER
     Route: 048

REACTIONS (4)
  - DISSOCIATION [None]
  - HALLUCINATION [None]
  - ILLUSION [None]
  - PARAESTHESIA [None]
